FAERS Safety Report 7250360-1 (Version None)
Quarter: 2011Q1

REPORT INFORMATION
  Report Type: 
  Country: None (occurrence: None)
  Receive Date: 20110128
  Receipt Date: 20091218
  Transmission Date: 20110831
  Serious: No
  Sender: FDA-Public Use
  Company Number: A0835944A

PATIENT
  Sex: Male

DRUGS (1)
  1. COMBIVIR [Suspect]
     Route: 065

REACTIONS (1)
  - NASOPHARYNGITIS [None]
